FAERS Safety Report 7037104-3 (Version None)
Quarter: 2010Q4

REPORT INFORMATION
  Report Type: 
  Country: None (occurrence: None)
  Receive Date: 20101011
  Receipt Date: 20101005
  Transmission Date: 20110411
  Serious: Yes (Death, Hospitalization)
  Sender: FDA-Public Use
  Company Number: PHHY2010SE65959

PATIENT
  Sex: Female

DRUGS (4)
  1. CERTICAN [Suspect]
     Indication: HODGKIN'S DISEASE
     Dosage: UNK
     Dates: start: 20100705
  2. DOLCONTIN [Concomitant]
  3. PARAFLEX [Concomitant]
  4. ALVEDON [Concomitant]

REACTIONS (3)
  - CARDIAC ARREST [None]
  - LUNG NEOPLASM [None]
  - PNEUMONIA [None]
